FAERS Safety Report 26202469 (Version 1)
Quarter: 2025Q4

REPORT INFORMATION
  Report Type: Spontaneous
  Country: EU (occurrence: EU)
  Receive Date: 20251226
  Receipt Date: 20251226
  Transmission Date: 20260117
  Serious: Yes (Other)
  Sender: AUROBINDO
  Company Number: EU-ETHYPHARM-2025004043

PATIENT
  Age: 19 Year

DRUGS (6)
  1. LINEZOLID [Suspect]
     Active Substance: LINEZOLID
     Indication: Meningitis
     Dosage: UNK
     Route: 065
  2. LINEZOLID [Suspect]
     Active Substance: LINEZOLID
     Indication: Extradural abscess
  3. CEFTAROLINE [Suspect]
     Active Substance: CEFTAROLINE
     Indication: Meningitis
     Dosage: UNK
     Route: 065
  4. CEFTAROLINE [Suspect]
     Active Substance: CEFTAROLINE
     Indication: Extradural abscess
  5. VANCOMYCIN [Suspect]
     Active Substance: VANCOMYCIN
     Indication: Meningitis
     Dosage: UNK
     Route: 065
  6. VANCOMYCIN [Suspect]
     Active Substance: VANCOMYCIN
     Indication: Extradural abscess

REACTIONS (1)
  - Hepatotoxicity [Unknown]

NARRATIVE: CASE EVENT DATE: 20250101
